FAERS Safety Report 7220564-2 (Version None)
Quarter: 2011Q1

REPORT INFORMATION
  Report Type: 
  Country: None (occurrence: None)
  Receive Date: 20110111
  Receipt Date: 20110106
  Transmission Date: 20110831
  Serious: Yes (Other)
  Sender: FDA-Public Use
  Company Number: US-AMGEN-USASP2010009679

PATIENT

DRUGS (4)
  1. NPLATE [Suspect]
     Indication: IDIOPATHIC THROMBOCYTOPENIC PURPURA
  2. NPLATE [Suspect]
     Indication: THROMBOCYTOPENIA
     Dosage: 4 A?G/KG, UNK
     Dates: start: 20100621, end: 20100709
  3. CORTICOSTEROIDS [Concomitant]
  4. DANAZOL [Concomitant]

REACTIONS (4)
  - ANGIOEDEMA [None]
  - DRUG INEFFECTIVE [None]
  - SWELLING FACE [None]
  - LOCALISED OEDEMA [None]
